FAERS Safety Report 24334364 (Version 2)
Quarter: 2024Q4

REPORT INFORMATION
  Report Type: Spontaneous
  Country: FR (occurrence: FR)
  Receive Date: 20240918
  Receipt Date: 20241003
  Transmission Date: 20250115
  Serious: Yes (Hospitalization, Other)
  Sender: SANDOZ
  Company Number: FR-PFIZER INC-2011110387

PATIENT
  Age: 61 Year
  Sex: Female

DRUGS (18)
  1. ATARAX [Suspect]
     Active Substance: HYDROXYZINE HYDROCHLORIDE
     Indication: Product used for unknown indication
     Dosage: 1 UNIT DAILY REGIMEN DOSE UNIT: DOSAGE FORM
     Route: 048
  2. FLOLAN [Suspect]
     Active Substance: EPOPROSTENOL SODIUM
     Dosage: 7.5 MG/KG/MIN
     Route: 042
  3. FLOLAN [Suspect]
     Active Substance: EPOPROSTENOL SODIUM
     Indication: Product used for unknown indication
     Dosage: 8 MG/KG/MIN
     Route: 042
     Dates: start: 20090916
  4. ESOMEPRAZOLE [Suspect]
     Active Substance: ESOMEPRAZOLE
     Indication: Product used for unknown indication
     Dosage: 1 UNIT DAILY REGIMEN DOSE UNIT: DOSAGE FORM
     Route: 048
  5. LEVOTHYROXINE SODIUM [Suspect]
     Active Substance: LEVOTHYROXINE SODIUM
     Indication: Product used for unknown indication
     Dosage: 50 UG, 1X/DAY REGIMEN DOSE UNIT: MICROGRAM
     Route: 048
  6. FUROSEMIDE [Suspect]
     Active Substance: FUROSEMIDE
     Indication: Product used for unknown indication
     Dosage: 2 UNITS DAILY REGIMEN DOSE UNIT: DOSAGE FORM
     Route: 048
  7. LORAZEPAM [Suspect]
     Active Substance: LORAZEPAM
     Indication: Product used for unknown indication
     Dosage: 4 MG, 1X/DAY REGIMEN DOSE UNIT: MILLIGRAM
     Route: 048
  8. MIANSERIN HYDROCHLORIDE [Suspect]
     Active Substance: MIANSERIN HYDROCHLORIDE
     Indication: Product used for unknown indication
     Dosage: 1 UNIT DAILY REGIMEN DOSE UNIT: DOSAGE FORM
     Route: 048
  9. REVATIO [Suspect]
     Active Substance: SILDENAFIL CITRATE
     Indication: Pulmonary hypertension
     Dosage: 3 UNITS DAILY REGIMEN DOSE UNIT: DOSAGE FORM
     Route: 048
  10. CYAMEMAZINE [Suspect]
     Active Substance: CYAMEMAZINE
     Indication: Product used for unknown indication
     Dosage: 15 ORAL DROPS DAILY
     Route: 048
  11. TRACLEER [Suspect]
     Active Substance: BOSENTAN
     Indication: Product used for unknown indication
     Dosage: 2 UNITS DAILY REGIMEN DOSE UNIT: DOSAGE FORM
     Route: 048
  12. TRACLEER [Suspect]
     Active Substance: BOSENTAN
     Indication: Product used for unknown indication
  13. VERAPAMIL [Suspect]
     Active Substance: VERAPAMIL HYDROCHLORIDE
     Dosage: 40 MG, 3X/DAY REGIMEN DOSE UNIT: MILLIGRAM
     Route: 048
     Dates: end: 20110411
  14. VERAPAMIL [Suspect]
     Active Substance: VERAPAMIL HYDROCHLORIDE
     Indication: Product used for unknown indication
     Dosage: 40 MILLIGRAM, 1/DAY
     Route: 048
     Dates: start: 20110412
  15. ZOLPIDEM [Suspect]
     Active Substance: ZOLPIDEM TARTRATE
     Indication: Product used for unknown indication
     Dosage: 2 TABLETS AT NIGHT REGIMEN DOSE UNIT: DOSAGE FORM
     Route: 048
  16. WARFARIN SODIUM [Interacting]
     Active Substance: WARFARIN SODIUM
     Indication: Product used for unknown indication
     Dosage: DEPENDING ON INR
     Route: 048
     Dates: start: 20110414
  17. WARFARIN SODIUM [Interacting]
     Active Substance: WARFARIN SODIUM
     Dosage: DEPENDING ON INR
     Route: 048
     Dates: end: 20110410
  18. TRAMADOL [Interacting]
     Active Substance: TRAMADOL
     Indication: Product used for unknown indication
     Dosage: 1 UNIT DAILY REGIMEN DOSE UNIT: DOSAGE FORM
     Route: 048

REACTIONS (6)
  - Gastrointestinal haemorrhage [Recovering/Resolving]
  - Melaena [Unknown]
  - Rectal haemorrhage [Unknown]
  - Thrombocytopenia [Recovered/Resolved]
  - Epistaxis [Unknown]
  - Drug interaction [Unknown]

NARRATIVE: CASE EVENT DATE: 20110410
